FAERS Safety Report 9766842 (Version 1)
Quarter: 2013Q4

REPORT INFORMATION
  Report Type: Spontaneous
  Country: US (occurrence: US)
  Receive Date: 20131217
  Receipt Date: 20131217
  Transmission Date: 20140711
  Serious: No
  Sender: FDA-Public Use
  Company Number: US-GLAXOSMITHKLINE-A1034092A

PATIENT
  Age: 83 Year
  Sex: Female

DRUGS (4)
  1. VOTRIENT [Suspect]
     Indication: SARCOMA
     Dosage: 4TAB PER DAY
     Route: 048
     Dates: start: 20130611, end: 20130712
  2. DULERA [Concomitant]
  3. PRO-AIR [Concomitant]
  4. XANAX [Concomitant]

REACTIONS (3)
  - Nausea [Recovered/Resolved]
  - Vomiting [Recovered/Resolved]
  - Pain in extremity [Recovered/Resolved]
